FAERS Safety Report 5076066-5 (Version None)
Quarter: 2006Q3

REPORT INFORMATION
  Report Type: 
  Country: None (occurrence: None)
  Receive Date: 20060809
  Receipt Date: 20060228
  Transmission Date: 20061208
  Serious: Yes (Hospitalization, Other)
  Sender: FDA-Public Use
  Company Number: GB-ABBOTT-06P-167-0326301-00

PATIENT
  Sex: Female
  Weight: 62 kg

DRUGS (14)
  1. HUMIRA [Suspect]
     Indication: RHEUMATOID ARTHRITIS
     Route: 058
     Dates: start: 20050515
  2. LEFLUNOMIDE [Concomitant]
     Indication: DRUG USE FOR UNKNOWN INDICATION
  3. PREDNISOLONE [Concomitant]
     Indication: DRUG USE FOR UNKNOWN INDICATION
  4. CALCITRIOL [Concomitant]
     Indication: DRUG USE FOR UNKNOWN INDICATION
  5. ACETAMINOPHEN W/ CODEINE [Concomitant]
     Indication: DRUG USE FOR UNKNOWN INDICATION
  6. FUROSEMIDE [Concomitant]
     Indication: DRUG USE FOR UNKNOWN INDICATION
  7. ISOSORBIDE MONONITRATE [Concomitant]
     Indication: DRUG USE FOR UNKNOWN INDICATION
  8. ISRADIPINE [Concomitant]
     Indication: DRUG USE FOR UNKNOWN INDICATION
  9. KLIOGEST ^NOVO INDUSTRI^ [Concomitant]
     Indication: DRUG USE FOR UNKNOWN INDICATION
  10. LATANOPROST [Concomitant]
     Indication: DRUG USE FOR UNKNOWN INDICATION
  11. METFORMIN [Concomitant]
     Indication: DRUG USE FOR UNKNOWN INDICATION
  12. OMEPRAZOLE [Concomitant]
     Indication: DRUG USE FOR UNKNOWN INDICATION
  13. ROFECOXIB [Concomitant]
     Indication: DRUG USE FOR UNKNOWN INDICATION
  14. TIMOLOL MALEATE [Concomitant]
     Indication: DRUG USE FOR UNKNOWN INDICATION

REACTIONS (3)
  - ANOREXIA [None]
  - FALL [None]
  - LETHARGY [None]
